FAERS Safety Report 9470555 (Version 3)
Quarter: 2013Q3

REPORT INFORMATION
  Report Type: Spontaneous
  Country: IE (occurrence: IE)
  Receive Date: 20130822
  Receipt Date: 20130927
  Transmission Date: 20140515
  Serious: Yes (Other)
  Sender: FDA-Public Use
  Company Number: IE-PFIZER INC-2013240852

PATIENT
  Age: 69 Year
  Sex: Female

DRUGS (4)
  1. LYRICA [Suspect]
     Dosage: 75 MG, 3X/DAY
     Dates: start: 2012
  2. TRAMADOL [Concomitant]
     Indication: PAIN
     Dosage: 50 MG, 1X/DAY
  3. TRAMADOL [Concomitant]
     Dosage: 100 MG, UNK
  4. GAVISCON [Concomitant]

REACTIONS (27)
  - Cerebrovascular accident [Unknown]
  - Diplopia [Unknown]
  - Dry eye [Unknown]
  - Asthenopia [Unknown]
  - Lacrimation increased [Unknown]
  - Visual impairment [Unknown]
  - Vision blurred [Unknown]
  - Madarosis [Unknown]
  - Eye pain [Unknown]
  - Neuralgia [Unknown]
  - Gait disturbance [Unknown]
  - Dizziness [Unknown]
  - Paraesthesia [Unknown]
  - Ageusia [Unknown]
  - Hypoaesthesia oral [Unknown]
  - Hypoaesthesia [Unknown]
  - Hearing impaired [Unknown]
  - Tinnitus [Recovered/Resolved]
  - Feeling cold [Unknown]
  - Hyperhidrosis [Unknown]
  - Weight increased [Unknown]
  - Skin discolouration [Unknown]
  - Depressed mood [Unknown]
  - Depression [Unknown]
  - Anxiety [Unknown]
  - Vision blurred [Unknown]
  - Euphoric mood [Unknown]
